FAERS Safety Report 10371944 (Version 1)
Quarter: 2014Q3

REPORT INFORMATION
  Report Type: Spontaneous
  Country: GB (occurrence: GB)
  Receive Date: 20140808
  Receipt Date: 20140808
  Transmission Date: 20150326
  Serious: Yes (Hospitalization)
  Sender: FDA-Public Use
  Company Number: GB-ACTAVIS-2014-17009

PATIENT
  Age: 50 Year
  Sex: Male
  Weight: 30 kg

DRUGS (1)
  1. ISOSORBIDE MONONITRATE (UNKNOWN) [Suspect]
     Active Substance: ISOSORBIDE MONONITRATE
     Indication: ANGINA PECTORIS
     Dosage: 30 MG, DAILY
     Route: 065
     Dates: start: 20140328, end: 20140416

REACTIONS (2)
  - Syncope [Recovered/Resolved]
  - Headache [Unknown]

NARRATIVE: CASE EVENT DATE: 20140411
